FAERS Safety Report 5572928-0 (Version None)
Quarter: 2007Q4

REPORT INFORMATION
  Report Type: 
  Country: None (occurrence: None)
  Receive Date: 20071220
  Receipt Date: 20071220
  Transmission Date: 20080405
  Serious: Yes (Other)
  Sender: FDA-Public Use
  Company Number: None

PATIENT
  Age: 8 Year
  Sex: Male

DRUGS (2)
  1. ADDERALL XR 10 [Suspect]
     Indication: ATTENTION DEFICIT/HYPERACTIVITY DISORDER
     Dosage: 10 MG PO QD
     Route: 048
  2. FOCALIN XR [Suspect]
     Dosage: 10 MG 1-2 MONTHS

REACTIONS (2)
  - IRRITABILITY [None]
  - PSYCHOMOTOR HYPERACTIVITY [None]
